FAERS Safety Report 9355684 (Version 1)
Quarter: 2013Q2

REPORT INFORMATION
  Report Type: Spontaneous
  Country: DE (occurrence: DE)
  Receive Date: 20130619
  Receipt Date: 20130619
  Transmission Date: 20140414
  Serious: Yes (Life-Threatening, Other)
  Sender: FDA-Public Use
  Company Number: DE-ELI_LILLY_AND_COMPANY-DE201306002477

PATIENT
  Age: 29 Year
  Sex: Female
  Weight: 70 kg

DRUGS (4)
  1. CYMBALTA [Suspect]
     Dosage: 600 MG, SINGLE
     Route: 065
     Dates: start: 20130608
  2. QUETIAPINE [Concomitant]
     Dosage: 18000 MG, SINGLE
     Route: 065
     Dates: start: 20130608
  3. ZOLPIDEM [Concomitant]
     Dosage: 100 MG, SINGLE
     Route: 065
     Dates: start: 20130608
  4. ZOPICLONE [Concomitant]
     Dosage: 150 MG, SINGLE
     Route: 065
     Dates: start: 20130608

REACTIONS (5)
  - Respiratory failure [Unknown]
  - Coma [Unknown]
  - Tachycardia [Unknown]
  - Suicide attempt [Unknown]
  - Intentional overdose [Unknown]
